FAERS Safety Report 18923815 (Version 2)
Quarter: 2021Q4

REPORT INFORMATION
  Report Type: Spontaneous
  Country: GB (occurrence: GB)
  Receive Date: 20210222
  Receipt Date: 20211020
  Transmission Date: 20220303
  Serious: Yes (Disabling)
  Sender: FDA-Public Use
  Company Number: UK-ANIPHARMA-2021-UK-000044

PATIENT
  Age: 70 Year
  Sex: Male
  Weight: 82 kg

DRUGS (7)
  1. CANDESARTAN CILEXETIL [Suspect]
     Active Substance: CANDESARTAN CILEXETIL
     Indication: Hypertension
     Dosage: 4 MG UNK / 8 MG UNK / DOSE TEXT: 16 MILLIGRAM AFTER A YEAR
     Route: 048
     Dates: end: 20210206
  2. AMLODIPINE BESYLATE [Concomitant]
     Active Substance: AMLODIPINE BESYLATE
     Route: 065
  3. BISOPROLOL FUMARATE [Concomitant]
     Active Substance: BISOPROLOL FUMARATE
     Route: 065
  4. COCODAMOL [Concomitant]
     Active Substance: ACETAMINOPHEN\CODEINE PHOSPHATE
     Route: 065
  5. IBUPROFEN [Concomitant]
     Active Substance: IBUPROFEN
     Route: 065
  6. LANSOPRAZOLE [Concomitant]
     Active Substance: LANSOPRAZOLE
     Route: 065
  7. TRAMADOL HYDROCHLORIDE [Concomitant]
     Active Substance: TRAMADOL HYDROCHLORIDE
     Route: 065

REACTIONS (4)
  - Neuralgia [Recovered/Resolved with Sequelae]
  - Neuralgia [Unknown]
  - Sleep disorder [Unknown]
  - Arthritis [Unknown]
